FAERS Safety Report 9832337 (Version 1)
Quarter: 2014Q1

REPORT INFORMATION
  Report Type: Spontaneous
  Country: US (occurrence: US)
  Receive Date: 20140121
  Receipt Date: 20140121
  Transmission Date: 20141002
  Serious: No
  Sender: FDA-Public Use
  Company Number: US-TARO-2013P1005376

PATIENT
  Age: 30 Year
  Sex: Female
  Weight: 65.77 kg

DRUGS (3)
  1. CLOTRIMAZOLE [Suspect]
     Indication: FUNGAL INFECTION
     Route: 067
     Dates: start: 20130425, end: 20130501
  2. FLAGYL [Concomitant]
  3. UNSPECIFIED VITAMIN [Concomitant]

REACTIONS (1)
  - Vomiting [Recovered/Resolved]
